FAERS Safety Report 10040779 (Version 2)
Quarter: 2014Q2

REPORT INFORMATION
  Report Type: Report from Study
  Country: NL (occurrence: NL)
  Receive Date: 20140327
  Receipt Date: 20140424
  Transmission Date: 20141212
  Serious: Yes (Hospitalization)
  Sender: FDA-Public Use
  Company Number: PHHY2014NL036317

PATIENT
  Age: 47 Year
  Sex: Female

DRUGS (8)
  1. ACLASTA [Suspect]
     Indication: OSTEOPOROSIS
     Dosage: 5 MG, PER 52 WEEKS
     Route: 042
     Dates: start: 20120321
  2. ACLASTA [Suspect]
     Dosage: 5 MG, PER 52 WEEKS
     Route: 042
     Dates: start: 20130318
  3. ACLASTA [Suspect]
     Dosage: 5 MG, PER 52 WEEKS
     Route: 042
     Dates: start: 20140324
  4. DEPAKINE [Concomitant]
     Dosage: 550 MG, TID
  5. DEPAKINE [Concomitant]
     Dosage: 500 MG, TID
  6. TRAMADOL [Concomitant]
     Dosage: 50 MG, TID
  7. LAMOTRIGINE [Concomitant]
     Dosage: 50 MG, BID
  8. VITAMIN D3 [Concomitant]
     Dosage: 50000 IU, PER WEEK

REACTIONS (3)
  - Transient ischaemic attack [Recovered/Resolved]
  - Motor dysfunction [Unknown]
  - Disorientation [Unknown]
